FAERS Safety Report 7407555-3 (Version None)
Quarter: 2011Q2

REPORT INFORMATION
  Report Type: 
  Country: None (occurrence: None)
  Receive Date: 20110412
  Receipt Date: 20110406
  Transmission Date: 20111010
  Serious: Yes (Other)
  Sender: FDA-Public Use
  Company Number: US-BIOGENIDEC-2011BI013150

PATIENT
  Age: 49 Year
  Sex: Female

DRUGS (2)
  1. COPAXONE [Concomitant]
     Dates: start: 20100101
  2. AVONEX [Suspect]
     Indication: MULTIPLE SCLEROSIS
     Route: 030
     Dates: start: 20090715, end: 20101102

REACTIONS (3)
  - CARDIAC DISORDER [None]
  - DRUG HYPERSENSITIVITY [None]
  - LUNG NEOPLASM MALIGNANT [None]
